FAERS Safety Report 5928811-1 (Version None)
Quarter: 2008Q4

REPORT INFORMATION
  Report Type: 
  Country: None (occurrence: None)
  Receive Date: 20081020
  Receipt Date: 20081002
  Transmission Date: 20090506
  Serious: Yes (Death, Life-Threatening)
  Sender: FDA-Public Use
  Company Number: 1000001326

PATIENT
  Sex: Female

DRUGS (1)
  1. DINOPROSTONE (DINOPROSTONE) [Suspect]
     Indication: LABOUR INDUCTION
     Dosage: (10 MG, ONCE), TRANSPLACENTAL
     Route: 064

REACTIONS (4)
  - APGAR SCORE LOW [None]
  - BRADYCARDIA FOETAL [None]
  - MATERNAL DRUGS AFFECTING FOETUS [None]
  - VACUUM EXTRACTOR DELIVERY [None]
